FAERS Safety Report 25716472 (Version 2)
Quarter: 2025Q3

REPORT INFORMATION
  Report Type: Spontaneous
  Country: AU (occurrence: AU)
  Receive Date: 20250822
  Receipt Date: 20250918
  Transmission Date: 20251021
  Serious: Yes (Other)
  Sender: SANDOZ
  Company Number: None

PATIENT
  Age: 64 Year
  Sex: Female

DRUGS (1)
  1. ADALIMUMAB [Suspect]
     Active Substance: ADALIMUMAB
     Indication: Rheumatoid arthritis
     Route: 058

REACTIONS (6)
  - Cardiac disorder [Unknown]
  - Uveitis [Unknown]
  - Sarcoidosis of lymph node [Unknown]
  - Interstitial lung disease [Unknown]
  - Hilar lymphadenopathy [Unknown]
  - Abnormal loss of weight [Unknown]
